FAERS Safety Report 11344245 (Version 1)
Quarter: 2015Q3

REPORT INFORMATION
  Report Type: Report from Study
  Country: US (occurrence: US)
  Receive Date: 20150806
  Receipt Date: 20150806
  Transmission Date: 20151125
  Serious: Yes (Death, Other)
  Sender: FDA-Public Use
  Company Number: US-ASTELLAS-2015US020156

PATIENT
  Age: 77 Year
  Sex: Male

DRUGS (2)
  1. ERLOTINIB [Suspect]
     Active Substance: ERLOTINIB
     Indication: LUNG NEOPLASM MALIGNANT
     Route: 048
  2. ERLOTINIB [Suspect]
     Active Substance: ERLOTINIB
     Indication: MALIGNANT RESPIRATORY TRACT NEOPLASM
     Dosage: 150 MG, OTHER 1 IN 2 D
     Route: 048

REACTIONS (3)
  - Death [Fatal]
  - Metastases to central nervous system [Unknown]
  - Malaise [Unknown]

NARRATIVE: CASE EVENT DATE: 20050719
